FAERS Safety Report 18224381 (Version 1)
Quarter: 2020Q3

REPORT INFORMATION
  Report Type: Report from Study
  Country: FR (occurrence: FR)
  Receive Date: 20200902
  Receipt Date: 20200902
  Transmission Date: 20201103
  Serious: Yes (Hospitalization)
  Sender: FDA-Public Use
  Company Number: FR-PURDUE PHARMA-GBR-2020-0077318

PATIENT
  Sex: Female
  Weight: 53 kg

DRUGS (7)
  1. DEXAMETHASONE. [Suspect]
     Active Substance: DEXAMETHASONE
     Dosage: 40 MG, WEEKLY (40 MILLIGRAM, 1/WEEK)
     Route: 048
     Dates: start: 20190429
  2. REVLIMID [Suspect]
     Active Substance: LENALIDOMIDE
     Indication: PLASMA CELL MYELOMA
     Dosage: 15 MG, DAILY (15 MILLIGRAM, QD)
     Route: 048
  3. REVLIMID [Suspect]
     Active Substance: LENALIDOMIDE
     Dosage: 10 MG, DAILY (10 MILLIGRAM, QD)
     Route: 048
     Dates: end: 20200204
  4. OXYCONTIN [Suspect]
     Active Substance: OXYCODONE HYDROCHLORIDE
     Indication: PRODUCT USED FOR UNKNOWN INDICATION
     Dosage: UNK
     Route: 065
  5. REVLIMID [Suspect]
     Active Substance: LENALIDOMIDE
     Dosage: 25 MG, DAILY (25 MILLIGRAM, QD)
     Route: 048
     Dates: start: 20190429
  6. DEXAMETHASONE. [Suspect]
     Active Substance: DEXAMETHASONE
     Indication: PLASMA CELL MYELOMA
     Dosage: 20 MG, WEEKLY (20 MILLIGRAM, 1/WEEK)
     Route: 048
     Dates: end: 20200204
  7. OXYCONTIN [Suspect]
     Active Substance: OXYCODONE HYDROCHLORIDE
     Indication: PRODUCT USED FOR UNKNOWN INDICATION
     Dosage: UNK
     Route: 065

REACTIONS (13)
  - Fatigue [Recovered/Resolved]
  - Abdominal pain upper [Recovered/Resolved]
  - Pyrexia [Recovering/Resolving]
  - General physical health deterioration [Unknown]
  - Haematotoxicity [Recovered/Resolved]
  - Diarrhoea [Recovered/Resolved]
  - Vomiting [Recovered/Resolved]
  - Asthenia [Unknown]
  - Neuralgia [Recovered/Resolved]
  - Memory impairment [Recovered/Resolved]
  - Pain in extremity [Recovered/Resolved]
  - Oedema peripheral [Recovered/Resolved]
  - Anaemia [Unknown]

NARRATIVE: CASE EVENT DATE: 201905
